FAERS Safety Report 4381907-0 (Version None)
Quarter: 2004Q2

REPORT INFORMATION
  Report Type: 
  Country: None (occurrence: None)
  Receive Date: 20040615
  Receipt Date: 20040601
  Transmission Date: 20050107
  Serious: Yes (Other)
  Sender: FDA-Public Use
  Company Number: 2004216975FR

PATIENT
  Sex: Male

DRUGS (1)
  1. XALATAN [Suspect]
     Indication: OCULAR HYPERTENSION
     Dosage: OPHTHALMIC
     Route: 047

REACTIONS (2)
  - CHOROIDAL DETACHMENT [None]
  - INTRAOCULAR PRESSURE DECREASED [None]
